FAERS Safety Report 4564582-1 (Version None)
Quarter: 2005Q1

REPORT INFORMATION
  Report Type: 
  Country: None (occurrence: None)
  Receive Date: 20050126
  Receipt Date: 20050112
  Transmission Date: 20050727
  Serious: Yes (Hospitalization)
  Sender: FDA-Public Use
  Company Number: F04200500009

PATIENT
  Age: 71 Year
  Sex: Female

DRUGS (3)
  1. ELOXATIN [Suspect]
     Indication: RECTAL CANCER
     Dosage: 50 MG/M2 OTHER (CUMULATIVE DOSE : 100 MG/M2)
     Route: 041
     Dates: start: 20050103, end: 20050103
  2. XELODA [Suspect]
     Indication: RECTAL CANCER
     Dosage: 1650 MG/M2 (CUMULATIVE DOSE: 23100 MG/M2)
     Route: 048
     Dates: start: 20041227, end: 20050109
  3. PRAVASTATIN SODIUM [Concomitant]

REACTIONS (3)
  - DYSPNOEA [None]
  - ILEUS [None]
  - RENAL FAILURE [None]
